FAERS Safety Report 24051552 (Version 2)
Quarter: 2024Q3

REPORT INFORMATION
  Report Type: Spontaneous
  Country: US (occurrence: US)
  Receive Date: 20240704
  Receipt Date: 20240822
  Transmission Date: 20241016
  Serious: No
  Sender: PFIZER
  Company Number: US-PFIZER INC-202400206277

PATIENT
  Age: 70 Year
  Sex: Male

DRUGS (17)
  1. INLYTA [Suspect]
     Active Substance: AXITINIB
     Indication: Renal cell carcinoma
     Dosage: 5 MG, 2X/DAY
     Route: 048
     Dates: start: 20240614
  2. INLYTA [Suspect]
     Active Substance: AXITINIB
     Dosage: 5 MG, 2X/DAY
     Route: 048
  3. KEYTRUDA [Concomitant]
     Active Substance: PEMBROLIZUMAB
  4. ASPIRIN [Concomitant]
     Active Substance: ASPIRIN
  5. NEXIUM [Concomitant]
     Active Substance: ESOMEPRAZOLE MAGNESIUM
  6. ALLOPURINOL [Concomitant]
     Active Substance: ALLOPURINOL
  7. LEVOTHYROXINE SODIUM [Concomitant]
     Active Substance: LEVOTHYROXINE SODIUM
  8. JARDIANCE [Concomitant]
     Active Substance: EMPAGLIFLOZIN
  9. BENICAR [Concomitant]
     Active Substance: OLMESARTAN MEDOXOMIL
  10. ROSUVASTATIN CALCIUM [Concomitant]
     Active Substance: ROSUVASTATIN CALCIUM
  11. LORATADINE [Concomitant]
     Active Substance: LORATADINE
  12. FENOFIBRATE [Concomitant]
     Active Substance: FENOFIBRATE
  13. AMLODIPINE BESYLATE [Concomitant]
     Active Substance: AMLODIPINE BESYLATE
  14. METOPROLOL SUCCINATE [Concomitant]
     Active Substance: METOPROLOL SUCCINATE
  15. TYLENOL [Concomitant]
     Active Substance: ACETAMINOPHEN
  16. VASCEPA [Concomitant]
     Active Substance: ICOSAPENT ETHYL
  17. CALCIUM\ERGOCALCIFEROL [Concomitant]
     Active Substance: CALCIUM\ERGOCALCIFEROL

REACTIONS (6)
  - Rash [Recovering/Resolving]
  - Pain [Unknown]
  - Bone pain [Unknown]
  - Pain in extremity [Unknown]
  - Toothache [Unknown]
  - Dry mouth [Unknown]
